FAERS Safety Report 5864927-6 (Version None)
Quarter: 2008Q3

REPORT INFORMATION
  Report Type: 
  Country: None (occurrence: None)
  Receive Date: 20080829
  Receipt Date: 20080717
  Transmission Date: 20090109
  Serious: No
  Sender: FDA-Public Use
  Company Number: US-ABBOTT-08P-163-0463878-00

PATIENT
  Sex: Female

DRUGS (3)
  1. SIMCOR [Suspect]
     Indication: HYPERCHOLESTEROLAEMIA
     Dosage: 500/20 - ONE TABLET AT BED TIME
     Route: 048
     Dates: start: 20080701, end: 20080705
  2. LORTAB [Concomitant]
     Indication: PAIN
     Dosage: 7.5/500 AS NEEDED
  3. ROPINIROLE [Concomitant]
     Indication: DRUG USE FOR UNKNOWN INDICATION
     Dosage: 1MG ONCE AT BED TIME
     Route: 048

REACTIONS (1)
  - DIZZINESS [None]
